FAERS Safety Report 9865209 (Version 1)
Quarter: 2014Q1

REPORT INFORMATION
  Report Type: Spontaneous
  Country: US (occurrence: US)
  Receive Date: 20140203
  Receipt Date: 20140203
  Transmission Date: 20141002
  Serious: No
  Sender: FDA-Public Use
  Company Number: US-ALLERGAN-1300373US

PATIENT
  Age: 59 Year
  Sex: Female

DRUGS (10)
  1. RESTASIS [Suspect]
     Indication: DRY EYE
     Route: 047
  2. FRESH COAT EYE DROP NOS [Concomitant]
     Indication: CORNEAL EROSION
  3. SYSTANE ULTRA [Concomitant]
     Indication: PRODUCT USED FOR UNKNOWN INDICATION
  4. SYSTANE BALANCE [Concomitant]
     Indication: PRODUCT USED FOR UNKNOWN INDICATION
  5. SYSTANE GELDROPS [Concomitant]
     Indication: PRODUCT USED FOR UNKNOWN INDICATION
  6. BEPREVE [Concomitant]
     Indication: SEASONAL ALLERGY
     Route: 047
  7. MURO 128                           /00075401/ [Concomitant]
     Indication: PRODUCT USED FOR UNKNOWN INDICATION
  8. KLONOPIN [Concomitant]
     Indication: ANXIETY
  9. CYMBALTA [Concomitant]
     Indication: ANXIETY
  10. VALTRAX [Concomitant]
     Indication: HERPES VIRUS INFECTION
     Dosage: UNK UNK, PRN

REACTIONS (3)
  - Eye irritation [Unknown]
  - Dry eye [Unknown]
  - Drug ineffective [Unknown]
